FAERS Safety Report 9284032 (Version 1)
Quarter: 2013Q2

REPORT INFORMATION
  Report Type: Spontaneous
  Country: US (occurrence: US)
  Receive Date: 20130510
  Receipt Date: 20130510
  Transmission Date: 20140414
  Serious: Yes (Other)
  Sender: FDA-Public Use
  Company Number: US-BAYER-2013-056175

PATIENT
  Age: 73 Year
  Sex: Male
  Weight: 107.94 kg

DRUGS (3)
  1. ALEVE TABLET [Suspect]
     Indication: ANALGESIC THERAPY
     Dosage: 1 DF, TID
     Route: 048
     Dates: start: 2011, end: 20130422
  2. PRILOSEC [Concomitant]
  3. TYLENOL [PARACETAMOL] [Concomitant]

REACTIONS (2)
  - Barrett^s oesophagus [Unknown]
  - Incorrect drug administration duration [None]
